FAERS Safety Report 8561237 (Version 2)
Quarter: 2013Q2

REPORT INFORMATION
  Report Type: Spontaneous
  Country: DK (occurrence: DK)
  Receive Date: 20120514
  Receipt Date: 20130607
  Transmission Date: 20140414
  Serious: Yes (Life-Threatening, Hospitalization, Other)
  Sender: FDA-Public Use
  Company Number: GXKR2008DK11597

PATIENT
  Age: 31 Year
  Sex: Female
  Weight: 70 kg

DRUGS (7)
  1. DICLON [Suspect]
     Indication: BACK PAIN
     Route: 048
     Dates: start: 20040429, end: 20040429
  2. TRAMADOL [Interacting]
     Dates: start: 20040429, end: 20040429
  3. CIPRAMIL//CITALOPRAM HYDROCHLORIDE [Interacting]
     Dosage: 40 MG
     Dates: start: 20040429, end: 20040429
  4. MERCILON [Suspect]
     Indication: CONTRACEPTION
     Route: 048
     Dates: start: 20040425, end: 20040527
  5. SEROXAT [Suspect]
     Dosage: 30 MG
     Dates: start: 20020701
  6. AKARIN [Concomitant]
     Indication: DEPRESSION
     Dosage: 40 MG, QD
  7. PINEX [Concomitant]

REACTIONS (18)
  - Acute myocardial infarction [Recovered/Resolved with Sequelae]
  - Chest pain [Unknown]
  - Serotonin syndrome [Unknown]
  - Hyperhidrosis [Not Recovered/Not Resolved]
  - Palpitations [Not Recovered/Not Resolved]
  - Restlessness [Not Recovered/Not Resolved]
  - Cardiac arrest [Recovered/Resolved with Sequelae]
  - Depressed level of consciousness [Recovered/Resolved with Sequelae]
  - Nausea [Recovered/Resolved with Sequelae]
  - Vomiting [Recovered/Resolved with Sequelae]
  - Memory impairment [Recovered/Resolved with Sequelae]
  - Drug interaction [Unknown]
  - Back pain [Unknown]
  - Weight increased [Not Recovered/Not Resolved]
  - Paraesthesia [Unknown]
  - Headache [Not Recovered/Not Resolved]
  - Arrhythmia [None]
  - Respiratory arrest [None]
